FAERS Safety Report 9283433 (Version 2)
Quarter: 2014Q2

REPORT INFORMATION
  Report Type: Spontaneous
  Country: US (occurrence: US)
  Receive Date: 20130510
  Receipt Date: 20140508
  Transmission Date: 20141212
  Serious: No
  Sender: FDA-Public Use
  Company Number: US-GLAXOSMITHKLINE-A1008208A

PATIENT
  Age: 49 Year
  Sex: Male

DRUGS (8)
  1. HERCEPTIN [Suspect]
     Indication: PRODUCT USED FOR UNKNOWN INDICATION
     Route: 065
  2. TYKERB [Suspect]
     Indication: BREAST CANCER
     Dosage: 1250MG PER DAY
     Route: 048
     Dates: start: 201211
  3. ZOFRAN [Suspect]
     Dosage: 8MG AS REQUIRED
     Route: 048
  4. LETRAZIRIL [Concomitant]
  5. VICODIN [Concomitant]
  6. COMPAZINE [Concomitant]
  7. MOTRIN [Concomitant]
  8. GLUCOPHAGE [Concomitant]

REACTIONS (2)
  - Cardiomyopathy [Unknown]
  - Pregnancy of partner [Unknown]
